FAERS Safety Report 4449221-2 (Version None)
Quarter: 2004Q3

REPORT INFORMATION
  Report Type: 
  Country: None (occurrence: None)
  Receive Date: 20040910
  Receipt Date: 20040906
  Transmission Date: 20050211
  Serious: Yes (Other)
  Sender: FDA-Public Use
  Company Number: HQWYE181116JUL04

PATIENT
  Age: 25 Year
  Sex: Male

DRUGS (4)
  1. MINOCYCLINE HCL [Suspect]
     Indication: UPPER RESPIRATORY TRACT INFLAMMATION
     Dosage: 100MG
     Route: 041
     Dates: start: 20021117, end: 20021117
  2. CEFZON (CEFDINIR) [Concomitant]
  3. LOXONIN (LOXOPROFEN SODIUM) [Concomitant]
  4. MUCOSTA (REBAMIPIDE) [Concomitant]

REACTIONS (1)
  - LIVER DISORDER [None]
